FAERS Safety Report 22122789 (Version 1)
Quarter: 2023Q1

REPORT INFORMATION
  Report Type: Report from Study
  Country: CA (occurrence: CA)
  Receive Date: 20230322
  Receipt Date: 20230322
  Transmission Date: 20230418
  Serious: Yes (Hospitalization)
  Sender: FDA-Public Use
  Company Number: CA-BoehringerIngelheim-2023-BI-222401

PATIENT
  Age: 59 Year
  Sex: Female

DRUGS (2)
  1. OFEV [Suspect]
     Active Substance: NINTEDANIB
     Indication: Systemic sclerosis pulmonary
     Dates: start: 20230215, end: 20230315
  2. OFEV [Suspect]
     Active Substance: NINTEDANIB
     Dates: start: 20230318

REACTIONS (3)
  - Dehydration [Recovering/Resolving]
  - Abdominal pain [Recovered/Resolved]
  - Impaired gastric emptying [Not Recovered/Not Resolved]

NARRATIVE: CASE EVENT DATE: 20230201
